FAERS Safety Report 21986535 (Version 1)
Quarter: 2023Q1

REPORT INFORMATION
  Report Type: Spontaneous
  Country: US (occurrence: None)
  Receive Date: 20230210
  Receipt Date: 20230210
  Transmission Date: 20230418
  Serious: No
  Sender: FDA-Public Use
  Company Number: None

PATIENT
  Age: 84 Year
  Sex: Female
  Weight: 81.72 kg

DRUGS (8)
  1. CAPECITABINE [Suspect]
     Active Substance: CAPECITABINE
     Indication: Breast cancer female
     Dosage: OTHER QUANTITY : 500MGX3TABS;?FREQUENCY : TWICE A DAY;?
     Route: 048
  2. AMLODIPINE [Concomitant]
     Active Substance: AMLODIPINE BESYLATE
  3. CAPECITABINE [Concomitant]
     Active Substance: CAPECITABINE
  4. LATANOPROST [Concomitant]
     Active Substance: LATANOPROST
  5. OLMESARTAN [Concomitant]
     Active Substance: OLMESARTAN
  6. TRAMADOL [Concomitant]
     Active Substance: TRAMADOL
  7. VITAMIN C (SYN) [Concomitant]
  8. VITAMIN D3 ULTRA POTENCY [OTC] [Concomitant]

REACTIONS (1)
  - Hospice care [None]
